FAERS Safety Report 10486295 (Version 5)
Quarter: 2014Q4

REPORT INFORMATION
  Report Type: Spontaneous
  Country: JP (occurrence: JP)
  Receive Date: 20141001
  Receipt Date: 20141204
  Transmission Date: 20150528
  Serious: Yes (Hospitalization, Other)
  Sender: FDA-Public Use
  Company Number: JP-JNJFOC-20140926207

PATIENT
  Sex: Female

DRUGS (6)
  1. INVEGA [Suspect]
     Active Substance: PALIPERIDONE
     Indication: EPILEPSY
     Route: 048
  2. INVEGA [Suspect]
     Active Substance: PALIPERIDONE
     Indication: EPILEPSY
     Route: 048
  3. INVEGA [Suspect]
     Active Substance: PALIPERIDONE
     Indication: EPILEPSY
     Route: 048
  4. INVEGA [Suspect]
     Active Substance: PALIPERIDONE
     Indication: EPILEPSY
     Route: 048
  5. INVEGA [Suspect]
     Active Substance: PALIPERIDONE
     Indication: EPILEPSY
     Route: 048
  6. INVEGA [Suspect]
     Active Substance: PALIPERIDONE
     Indication: EPILEPSY
     Route: 048

REACTIONS (12)
  - Energy increased [Unknown]
  - Gastritis [Unknown]
  - Decreased appetite [Unknown]
  - Constipation [Unknown]
  - Weight increased [Not Recovered/Not Resolved]
  - Hepatic steatosis [Unknown]
  - Hospitalisation [Unknown]
  - Product use issue [Unknown]
  - Hepatitis [Unknown]
  - Hypersensitivity [Unknown]
  - Drug prescribing error [Unknown]
  - Heat illness [Unknown]
